FAERS Safety Report 5977530-4 (Version None)
Quarter: 2008Q4

REPORT INFORMATION
  Report Type: 
  Country: None (occurrence: None)
  Receive Date: 20081203
  Receipt Date: 20081125
  Transmission Date: 20090506
  Serious: Yes (Disabling)
  Sender: FDA-Public Use
  Company Number: CA-ASTRAZENECA-2008UW26560

PATIENT
  Age: 53 Year
  Sex: Male

DRUGS (3)
  1. SYMBICORT [Suspect]
     Route: 055
     Dates: start: 20081106
  2. LORAZEPAM [Concomitant]
     Indication: ANXIETY
  3. TRIAZOLAM [Concomitant]
     Indication: ANXIETY

REACTIONS (2)
  - DRUG INEFFECTIVE [None]
  - DYSPNOEA [None]
